FAERS Safety Report 4278397-5 (Version None)
Quarter: 2004Q1

REPORT INFORMATION
  Report Type: 
  Country: None (occurrence: None)
  Receive Date: 20040123
  Receipt Date: 20040112
  Transmission Date: 20041129
  Serious: Yes (Other)
  Sender: FDA-Public Use
  Company Number: US-BRISTOL-MYERS SQUIBB COMPANY-12480513

PATIENT
  Sex: Male

DRUGS (17)
  1. SERZONE [Suspect]
     Indication: DEPRESSION
     Route: 048
     Dates: start: 19980103, end: 20020830
  2. PROZAC [Concomitant]
     Route: 048
  3. TRAZODONE HCL [Concomitant]
     Indication: SLEEP DISORDER
     Route: 048
  4. WELLBUTRIN SR [Concomitant]
     Route: 048
  5. LIPITOR [Concomitant]
  6. RHINOCORT [Concomitant]
     Route: 055
  7. PRAVACHOL [Concomitant]
  8. AMOXICILLIN [Concomitant]
  9. PROMETHAZINE + CODEINE [Concomitant]
  10. NAPROXEN [Concomitant]
  11. GLUCOPHAGE [Concomitant]
  12. XANAX [Concomitant]
  13. ALLEGRA-D [Concomitant]
  14. ROBAXIN [Concomitant]
  15. TYLENOL W/ CODEINE NO. 3 [Concomitant]
  16. VIOXX [Concomitant]
  17. GUIATUSS [Concomitant]

REACTIONS (16)
  - CHEMICAL POISONING [None]
  - DUPUYTREN'S CONTRACTURE [None]
  - DYSPNOEA [None]
  - EPISCLERITIS [None]
  - GASTROOESOPHAGEAL REFLUX DISEASE [None]
  - HEPATIC CIRRHOSIS [None]
  - HEPATITIS A [None]
  - HEPATITIS B [None]
  - HEPATITIS C [None]
  - INTERVERTEBRAL DISC PROTRUSION [None]
  - OBSTRUCTIVE AIRWAYS DISORDER [None]
  - OSTEOARTHRITIS [None]
  - PROSTATE CANCER [None]
  - PULMONARY FIBROSIS [None]
  - TENDONITIS [None]
  - VISION BLURRED [None]
